FAERS Safety Report 20665088 (Version 1)
Quarter: 2022Q2

REPORT INFORMATION
  Report Type: Spontaneous
  Country: US (occurrence: US)
  Receive Date: 20220401
  Receipt Date: 20220401
  Transmission Date: 20220721
  Serious: No
  Sender: FDA-Public Use
  Company Number: US-PFIZER INC-2021895587

PATIENT
  Age: 60 Year
  Sex: Female
  Weight: 119.7 kg

DRUGS (14)
  1. IBRANCE [Suspect]
     Active Substance: PALBOCICLIB
     Indication: Breast cancer female
     Dosage: 75 MG, DAILY (DAILY FOR 21 DAYS)
     Route: 048
     Dates: start: 202106
  2. CALCIUM CARBONATE [Concomitant]
     Active Substance: CALCIUM CARBONATE
  3. FULVESTRANT [Concomitant]
     Active Substance: FULVESTRANT
  4. LORATADINE [Concomitant]
     Active Substance: LORATADINE
  5. VITAMIN D3 [Concomitant]
     Active Substance: CHOLECALCIFEROL
  6. AZATHIOPRINE [Concomitant]
     Active Substance: AZATHIOPRINE
  7. HYDROCODONE BITARTRATE AND ACETAMINOPHEN [Concomitant]
     Active Substance: ACETAMINOPHEN\HYDROCODONE BITARTRATE
  8. PROCHLORPERAZINE MALEATE [Concomitant]
     Active Substance: PROCHLORPERAZINE MALEATE
  9. ANASTROZOLE [Concomitant]
     Active Substance: ANASTROZOLE
  10. COREG CR [Concomitant]
     Active Substance: CARVEDILOL PHOSPHATE
  11. PREDNISONE [Concomitant]
     Active Substance: PREDNISONE
  12. MELOXICAM [Concomitant]
     Active Substance: MELOXICAM
  13. NIFEDIPINE [Concomitant]
     Active Substance: NIFEDIPINE
  14. DULOXETINE HYDROCHLORIDE [Concomitant]
     Active Substance: DULOXETINE HYDROCHLORIDE

REACTIONS (1)
  - Diarrhoea [Recovered/Resolved]
